FAERS Safety Report 21945463 (Version 1)
Quarter: 2023Q1

REPORT INFORMATION
  Report Type: Spontaneous
  Country: US (occurrence: None)
  Receive Date: 20230201
  Receipt Date: 20230201
  Transmission Date: 20230418
  Serious: No
  Sender: FDA-Public Use
  Company Number: None

PATIENT
  Age: 49 Year
  Sex: Female
  Weight: 77.11 kg

DRUGS (1)
  1. SKYRIZI [Suspect]
     Active Substance: RISANKIZUMAB-RZAA
     Indication: Psoriasis
     Dosage: INJECT 150MG (2 SYRINGES) SUBCUTANEOUSLY  ON DAY  0 AND  DAY 28 AS DIRECTED?
     Route: 058
     Dates: start: 202102

REACTIONS (1)
  - COVID-19 [None]
